FAERS Safety Report 6021139-3 (Version None)
Quarter: 2008Q4

REPORT INFORMATION
  Report Type: 
  Country: None (occurrence: None)
  Receive Date: 20081229
  Receipt Date: 20081222
  Transmission Date: 20090506
  Serious: Yes (Hospitalization)
  Sender: FDA-Public Use
  Company Number: FR-AVENTIS-200814547FR

PATIENT
  Age: 87 Year
  Sex: Male

DRUGS (16)
  1. BIPROFENID [Suspect]
     Indication: PAIN
     Route: 048
  2. LASIX [Suspect]
     Indication: CARDIOMYOPATHY
     Route: 048
  3. CALCIPARINE [Suspect]
     Indication: PROPHYLAXIS
     Route: 058
  4. RAMIPRIL [Suspect]
     Indication: CARDIOMYOPATHY
     Route: 048
  5. MOPRAL [Concomitant]
     Route: 048
  6. CORDARONE [Concomitant]
     Route: 048
  7. CARDENSIEL [Concomitant]
     Route: 048
  8. CRESTOR [Concomitant]
     Route: 048
  9. SERESTA [Concomitant]
     Route: 048
  10. SERESTA [Concomitant]
     Route: 048
  11. DAFALGAN                           /00020001/ [Concomitant]
     Route: 048
  12. FORLAX [Concomitant]
     Route: 048
  13. DEBRIDAT                           /00465201/ [Concomitant]
     Route: 048
  14. LYRICA [Concomitant]
     Route: 048
  15. LYRICA [Concomitant]
     Route: 048
  16. IXPRIM [Concomitant]
     Route: 048

REACTIONS (1)
  - RENAL FAILURE ACUTE [None]
